FAERS Safety Report 14547602 (Version 3)
Quarter: 2018Q4

REPORT INFORMATION
  Report Type: Spontaneous
  Country: IT (occurrence: IT)
  Receive Date: 20180219
  Receipt Date: 20181219
  Transmission Date: 20190204
  Serious: Yes (Other)
  Sender: FDA-Public Use
  Company Number: IT-MYLANLABS-2018M1010635

PATIENT
  Age: 60 Year
  Sex: Female

DRUGS (4)
  1. KLACID [Suspect]
     Active Substance: CLARITHROMYCIN
     Indication: HELICOBACTER TEST POSITIVE
     Dosage: 1 DF,TOTAL
     Route: 048
     Dates: start: 20180118, end: 20180118
  2. AUGMENTIN [Suspect]
     Active Substance: AMOXICILLIN\CLAVULANATE POTASSIUM
     Indication: HELICOBACTER TEST POSITIVE
     Dosage: 1 DF, TOTAL
     Route: 048
     Dates: start: 20180118, end: 20180118
  3. AUGMENTIN [Suspect]
     Active Substance: AMOXICILLIN\CLAVULANATE POTASSIUM
     Dosage: 1 DF, TOTAL
     Route: 048
  4. KLACID [Suspect]
     Active Substance: CLARITHROMYCIN
     Dosage: 1 DF,TOTAL
     Route: 048

REACTIONS (3)
  - Erythema [Recovering/Resolving]
  - Nausea [Recovering/Resolving]
  - Pruritus [Recovering/Resolving]

NARRATIVE: CASE EVENT DATE: 20180118
